FAERS Safety Report 24287183 (Version 1)
Quarter: 2024Q3

REPORT INFORMATION
  Report Type: Spontaneous
  Country: US (occurrence: None)
  Receive Date: 20240903
  Receipt Date: 20240903
  Transmission Date: 20241017
  Serious: Yes (Hospitalization)
  Sender: Public
  Company Number: None

PATIENT
  Sex: Female

DRUGS (1)
  1. WILATE - VON WILLEBRAND FACTOR/COAGULATION FACTOR VIII COMPLEX (HUMAN) [Suspect]
     Active Substance: HUMAN COAGULATION FACTOR VIII/VON WILLEBRAND FACTOR COMPLEX
     Indication: Von Willebrand^s disease
     Dosage: OTHER QUANTITY : 4500  ROOF UNITS;?FREQUENCY : AS NEEDED;?OTHER ROUTE : SLOW IV PUSH ;?
     Route: 050
     Dates: start: 20240716

REACTIONS (1)
  - Seizure [None]

NARRATIVE: CASE EVENT DATE: 20240716
